FAERS Safety Report 8250058-7 (Version None)
Quarter: 2012Q2

REPORT INFORMATION
  Report Type: 
  Country: None (occurrence: None)
  Receive Date: 20120402
  Receipt Date: 20120327
  Transmission Date: 20120825
  Serious: Yes (Hospitalization, Other)
  Sender: FDA-Public Use
  Company Number: US-CELGENEUS-163-21880-11122180

PATIENT
  Sex: Female
  Weight: 61.2 kg

DRUGS (8)
  1. REVLIMID [Suspect]
     Dosage: 5 MILLIGRAM
     Route: 048
     Dates: start: 20110826, end: 20111210
  2. NEXIUM [Concomitant]
     Dosage: 40
     Route: 065
     Dates: start: 20110809
  3. TRAMADOL HCL [Concomitant]
     Route: 065
     Dates: start: 20110809
  4. OXACILLIN [Concomitant]
     Route: 041
  5. RED BLOOD CELLS [Concomitant]
     Dosage: 4 UNITS
     Route: 041
  6. STEROIDS [Concomitant]
     Route: 065
  7. SINGULAIR [Concomitant]
     Route: 065
     Dates: start: 20110809
  8. BONIVA [Concomitant]
     Route: 065
     Dates: start: 20110809

REACTIONS (1)
  - POLYMYALGIA RHEUMATICA [None]
